FAERS Safety Report 17586336 (Version 1)
Quarter: 2020Q1

REPORT INFORMATION
  Report Type: Report from Study
  Country: None (occurrence: US)
  Receive Date: 20200326
  Receipt Date: 20200326
  Transmission Date: 20200409
  Serious: Yes (Hospitalization, Other)
  Sender: FDA-Public Use
  Company Number: US-BIOVITRUM-2019US4400

PATIENT
  Age: 16 Year
  Sex: Female

DRUGS (2)
  1. KINERET [Suspect]
     Active Substance: ANAKINRA
     Route: 058
     Dates: start: 20191114
  2. KINERET [Suspect]
     Active Substance: ANAKINRA
     Indication: SYSTEMIC LUPUS ERYTHEMATOSUS
     Dosage: 1.34 ML 3 TIMES DAILY
     Route: 058
     Dates: start: 20191114

REACTIONS (4)
  - Injection site pain [Unknown]
  - Injection site reaction [Recovered/Resolved]
  - Hepatitis [Unknown]
  - Off label use [Unknown]

NARRATIVE: CASE EVENT DATE: 20191114
